FAERS Safety Report 22594698 (Version 7)
Quarter: 2023Q4

REPORT INFORMATION
  Report Type: Spontaneous
  Country: US (occurrence: US)
  Receive Date: 20230613
  Receipt Date: 20231208
  Transmission Date: 20240110
  Serious: Yes (Hospitalization)
  Sender: FDA-Public Use
  Company Number: US-002147023-NVSC2023US130742

PATIENT
  Age: 1 Year
  Sex: Male

DRUGS (14)
  1. PROMACTA [Suspect]
     Active Substance: ELTROMBOPAG OLAMINE
     Indication: Thrombocytopenia
     Dosage: 25 MG, QD (MIX 1PACKET WITH 20 ML OF COLD DRINKING WATER AS DIRECTED VIA G-TUBE)
     Route: 065
     Dates: start: 202305
  2. PROMACTA [Suspect]
     Active Substance: ELTROMBOPAG OLAMINE
  3. REMODULIN [Concomitant]
     Active Substance: TREPROSTINIL
     Indication: Bone marrow transplant
     Dosage: UNK
     Route: 065
  4. REMODULIN [Concomitant]
     Active Substance: TREPROSTINIL
     Indication: Thrombocytopenia
  5. REMODULIN [Concomitant]
     Active Substance: TREPROSTINIL
     Indication: Wiskott-Aldrich syndrome
  6. SILDENAFIL [Concomitant]
     Active Substance: SILDENAFIL
     Indication: Bone marrow transplant
     Dosage: UNK (SUSPENSION)
     Route: 065
  7. SILDENAFIL [Concomitant]
     Active Substance: SILDENAFIL
     Indication: Thrombocytopenia
  8. SILDENAFIL [Concomitant]
     Active Substance: SILDENAFIL
     Indication: Wiskott-Aldrich syndrome
  9. CYCLOSPORINE [Concomitant]
     Active Substance: CYCLOSPORINE
     Indication: Bone marrow transplant
     Dosage: UNK
     Route: 065
  10. CYCLOSPORINE [Concomitant]
     Active Substance: CYCLOSPORINE
     Indication: Thrombocytopenia
  11. CYCLOSPORINE [Concomitant]
     Active Substance: CYCLOSPORINE
     Indication: Wiskott-Aldrich syndrome
  12. TRIAMCINOLONE [Concomitant]
     Active Substance: TRIAMCINOLONE
     Indication: Bone marrow transplant
     Dosage: UNK
     Route: 065
  13. TRIAMCINOLONE [Concomitant]
     Active Substance: TRIAMCINOLONE
     Indication: Thrombocytopenia
  14. TRIAMCINOLONE [Concomitant]
     Active Substance: TRIAMCINOLONE
     Indication: Wiskott-Aldrich syndrome

REACTIONS (4)
  - Cytomegalovirus viraemia [Not Recovered/Not Resolved]
  - Febrile neutropenia [Unknown]
  - Hypoxia [Unknown]
  - Vomiting [Not Recovered/Not Resolved]

NARRATIVE: CASE EVENT DATE: 20230715
